FAERS Safety Report 11595854 (Version 4)
Quarter: 2016Q1

REPORT INFORMATION
  Report Type: Spontaneous
  Country: US (occurrence: US)
  Receive Date: 20151006
  Receipt Date: 20160225
  Transmission Date: 20160525
  Serious: Yes (Hospitalization)
  Sender: FDA-Public Use
  Company Number: US-BAYER-2015-437142

PATIENT
  Age: 31 Year
  Sex: Female
  Weight: 78.46 kg

DRUGS (1)
  1. MIRENA [Suspect]
     Active Substance: LEVONORGESTREL
     Indication: CONTRACEPTION
     Dosage: 20 MCG/24HR, CONT
     Route: 015
     Dates: start: 20100208, end: 20150423

REACTIONS (9)
  - Uterine perforation [None]
  - Ectopic pregnancy with contraceptive device [None]
  - Drug ineffective [None]
  - Device use error [None]
  - Depression [Recovered/Resolved]
  - Injury [None]
  - Anxiety [Recovered/Resolved]
  - Device dislocation [None]
  - Pain [None]

NARRATIVE: CASE EVENT DATE: 201503
